FAERS Safety Report 10785356 (Version 3)
Quarter: 2015Q1

REPORT INFORMATION
  Report Type: Spontaneous
  Country: JP (occurrence: None)
  Receive Date: 20150209
  Receipt Date: 20150220
  Transmission Date: 20150721
  Serious: Yes (Death, Hospitalization, Other)
  Sender: FDA-Public Use
  Company Number: ADR-2015-00273

PATIENT
  Age: 77 Year
  Sex: Male
  Weight: 68 kg

DRUGS (1)
  1. GABALON INTRATHECAL 0.05% [Suspect]
     Active Substance: BACLOFEN
     Dates: start: 20120612, end: 20150115

REACTIONS (2)
  - Pneumonia [None]
  - Staphylococcal infection [None]
